FAERS Safety Report 12059766 (Version 1)
Quarter: 2016Q1

REPORT INFORMATION
  Report Type: Report from Study
  Country: US (occurrence: US)
  Receive Date: 20160210
  Receipt Date: 20160210
  Transmission Date: 20160526
  Serious: Yes (Other)
  Sender: FDA-Public Use
  Company Number: US-ABBVIE-16K-163-1553582-00

PATIENT
  Sex: Male

DRUGS (1)
  1. HUMIRA [Suspect]
     Active Substance: ADALIMUMAB
     Indication: RHEUMATOID ARTHRITIS
     Route: 058

REACTIONS (5)
  - Musculoskeletal stiffness [Not Recovered/Not Resolved]
  - Spinal osteoarthritis [Unknown]
  - Arthralgia [Not Recovered/Not Resolved]
  - Spinal fracture [Unknown]
  - Cervical vertebral fracture [Unknown]
